FAERS Safety Report 15400303 (Version 1)
Quarter: 2018Q3

REPORT INFORMATION
  Report Type: Spontaneous
  Country: HU (occurrence: HU)
  Receive Date: 20180919
  Receipt Date: 20180919
  Transmission Date: 20181010
  Serious: Yes (Hospitalization, Other)
  Sender: FDA-Public Use
  Company Number: HU-TEVA-2018-HU-955892

PATIENT
  Age: 71 Year
  Sex: Female

DRUGS (8)
  1. SYNCUMAR MITE [Concomitant]
     Active Substance: ACENOCOUMAROL
     Dosage: 1.5 MILLIGRAM DAILY;
     Route: 048
  2. PORTIRON [Concomitant]
     Dosage: 25 MILLIGRAM DAILY;
     Route: 048
  3. ZYLLT [Concomitant]
     Active Substance: CLOPIDOGREL BISULFATE
     Dosage: 75 MILLIGRAM DAILY;
     Route: 048
  4. NOACID [Concomitant]
     Active Substance: ALUMINUM HYDROXIDE
     Dosage: 40 MILLIGRAM DAILY;
     Route: 048
  5. SPIRON [Concomitant]
     Dosage: 50 MILLIGRAM DAILY;
     Route: 048
  6. BISOPROLOL ACTAVIS [Concomitant]
     Active Substance: BISOPROLOL
     Dosage: 5 MILLIGRAM DAILY;
     Route: 048
  7. HERPESIN [Suspect]
     Active Substance: ACYCLOVIR
     Indication: HERPES ZOSTER
     Route: 042
     Dates: start: 201808
  8. XETER [Concomitant]
     Active Substance: ROSUVASTATIN CALCIUM
     Dosage: 10 MILLIGRAM DAILY;
     Route: 048

REACTIONS (2)
  - Consciousness fluctuating [Recovering/Resolving]
  - Delirium [Recovering/Resolving]

NARRATIVE: CASE EVENT DATE: 20180814
